FAERS Safety Report 7118624-X (Version None)
Quarter: 2010Q4

REPORT INFORMATION
  Report Type: 
  Country: None (occurrence: None)
  Receive Date: 20101123
  Receipt Date: 20101115
  Transmission Date: 20110411
  Serious: Yes (Hospitalization)
  Sender: FDA-Public Use
  Company Number: JP-JNJFOC-20100905220

PATIENT
  Sex: Female
  Weight: 42 kg

DRUGS (4)
  1. GOLIMUMAB [Suspect]
     Indication: RHEUMATOID ARTHRITIS
     Route: 058
  2. PLACEBO [Suspect]
     Indication: RHEUMATOID ARTHRITIS
     Route: 058
  3. PREDNISOLONE [Suspect]
     Indication: CONNECTIVE TISSUE DISORDER
     Route: 048
  4. RHEUMATREX [Suspect]
     Indication: CONNECTIVE TISSUE DISORDER
     Route: 048

REACTIONS (1)
  - CYTOMEGALOVIRUS INFECTION [None]
